FAERS Safety Report 9170454 (Version 1)
Quarter: 2013Q1

REPORT INFORMATION
  Report Type: Spontaneous
  Country: US (occurrence: None)
  Receive Date: 20130315
  Receipt Date: 20130315
  Transmission Date: 20140127
  Serious: Yes (Other)
  Sender: FDA-Public Use
  Company Number: None

PATIENT
  Age: 57 Year
  Sex: Female
  Weight: 71.67 kg

DRUGS (1)
  1. AZITHROMYCIN 250MG [Suspect]
     Indication: SINUSITIS
     Dosage: 1 TABLET A DAY FOR 10 DAYS NASAL
     Route: 045
     Dates: start: 20130305, end: 20130314

REACTIONS (4)
  - Wheezing [None]
  - Malaise [None]
  - Dyspnoea [None]
  - Apparent death [None]
